FAERS Safety Report 8051951-0 (Version None)
Quarter: 2012Q1

REPORT INFORMATION
  Report Type: 
  Country: None (occurrence: None)
  Receive Date: 20120118
  Receipt Date: 20120112
  Transmission Date: 20120608
  Serious: Yes (Other)
  Sender: FDA-Public Use
  Company Number: AU-JNJFOC-20120104900

PATIENT
  Sex: Female

DRUGS (3)
  1. INVEGA SUSTENNA [Suspect]
     Indication: PRODUCT USED FOR UNKNOWN INDICATION
     Route: 030
     Dates: start: 20120105
  2. INVEGA SUSTENNA [Suspect]
     Route: 030
     Dates: start: 20110401
  3. INVEGA SUSTENNA [Suspect]
     Route: 030
     Dates: start: 20111110

REACTIONS (2)
  - VISUAL IMPAIRMENT [None]
  - HALLUCINATION, VISUAL [None]
